FAERS Safety Report 6189451-5 (Version None)
Quarter: 2009Q2

REPORT INFORMATION
  Report Type: 
  Country: None (occurrence: None)
  Receive Date: 20090512
  Receipt Date: 20090428
  Transmission Date: 20091009
  Serious: Yes (Other)
  Sender: FDA-Public Use
  Company Number: 090318-0000541

PATIENT
  Sex: Female

DRUGS (2)
  1. INDOCIN [Suspect]
     Indication: PATENT DUCTUS ARTERIOSUS
     Dosage: 0.2 MG/KG; QD; IV
     Route: 042
  2. SURFACTEN [Concomitant]

REACTIONS (5)
  - AUTISM SPECTRUM DISORDER [None]
  - HAEMOLYTIC ANAEMIA [None]
  - HYPOXIA [None]
  - PULMONARY HYPERTENSION [None]
  - RESPIRATORY DISORDER NEONATAL [None]
